FAERS Safety Report 10474951 (Version 1)
Quarter: 2014Q3

REPORT INFORMATION
  Report Type: Spontaneous
  Country: US (occurrence: US)
  Receive Date: 20140925
  Receipt Date: 20140925
  Transmission Date: 20150326
  Serious: No
  Sender: FDA-Public Use
  Company Number: US-BIOGENIDEC-2014BI096930

PATIENT
  Age: 34 Year
  Sex: Female

DRUGS (2)
  1. TECFIDERA [Suspect]
     Active Substance: DIMETHYL FUMARATE
     Indication: RELAPSING-REMITTING MULTIPLE SCLEROSIS
     Route: 048
     Dates: start: 20140912
  2. NEURONTIN [Concomitant]
     Active Substance: GABAPENTIN

REACTIONS (6)
  - Flushing [Not Recovered/Not Resolved]
  - Insomnia [Unknown]
  - Pruritus [Unknown]
  - Prescribed underdose [Not Recovered/Not Resolved]
  - Paraesthesia [Unknown]
  - Burning sensation [Unknown]

NARRATIVE: CASE EVENT DATE: 20140912
